FAERS Safety Report 8927588 (Version 2)
Quarter: 2012Q4

REPORT INFORMATION
  Report Type: 
  Country: DK (occurrence: DK)
  Receive Date: 20121127
  Receipt Date: 20121211
  Transmission Date: 20130627
  Serious: Yes (Death)
  Sender: FDA-Public Use
  Company Number: DK-PFIZER INC-2012082524

PATIENT
  Age: 44 Year
  Sex: Female

DRUGS (1)
  1. EFEXOR DEPOT [Suspect]
     Dosage: UNK

REACTIONS (2)
  - Acute leukaemia [Fatal]
  - Malaise [Unknown]
